FAERS Safety Report 9552258 (Version 3)
Quarter: 2014Q2

REPORT INFORMATION
  Report Type: Report from Study
  Country: DE (occurrence: DE)
  Receive Date: 20130925
  Receipt Date: 20140520
  Transmission Date: 20141212
  Serious: Yes (Other)
  Sender: FDA-Public Use
  Company Number: DE-INCYTE CORPORATION-2013IN002139

PATIENT
  Age: 71 Year
  Sex: Female
  Weight: 77 kg

DRUGS (2)
  1. INCB018424 [Suspect]
     Indication: MYELOFIBROSIS
     Dosage: 2 DF (5 MG EACH), DAILY
     Route: 048
     Dates: start: 20130426, end: 20130517
  2. INCB018424 [Suspect]
     Dosage: 1 DF (5MG EACH), DAILY
     Route: 048
     Dates: start: 20130517, end: 20130906

REACTIONS (1)
  - Hepatic enzyme increased [Unknown]
